FAERS Safety Report 15749138 (Version 3)
Quarter: 2019Q1

REPORT INFORMATION
  Report Type: Spontaneous
  Country: US (occurrence: US)
  Receive Date: 20181221
  Receipt Date: 20190213
  Transmission Date: 20190417
  Serious: Yes (Other)
  Sender: FDA-Public Use
  Company Number: US-RECKITT BENCKISER HEALTHCARE INT LIMITED-RB-95082-2018

PATIENT
  Age: 37 Year
  Sex: Male

DRUGS (1)
  1. MUCINEX DM MAXIMUM STRENGTH [Suspect]
     Active Substance: DEXTROMETHORPHAN HYDROBROMIDE\GUAIFENESIN
     Indication: COUGH
     Dosage: 1200 MILLIGRAM, SINGLE
     Route: 065
     Dates: start: 20181218

REACTIONS (9)
  - Fatigue [Recovered/Resolved]
  - Pruritus generalised [Recovered/Resolved]
  - Skin disorder [Recovered/Resolved]
  - Pain [Recovered/Resolved]
  - Rash [Recovered/Resolved]
  - Haemoptysis [Recovered/Resolved]
  - Hypersensitivity [Recovered/Resolved]
  - Somnolence [Recovered/Resolved]
  - Vomiting [Recovered/Resolved]

NARRATIVE: CASE EVENT DATE: 20181218
